FAERS Safety Report 19731357 (Version 1)
Quarter: 2021Q3

REPORT INFORMATION
  Report Type: Spontaneous
  Country: US (occurrence: US)
  Receive Date: 20210819
  Receipt Date: 20210819
  Transmission Date: 20211014
  Serious: No
  Sender: FDA-Public Use
  Company Number: None

PATIENT
  Sex: Female

DRUGS (2)
  1. MATULANE [Concomitant]
     Active Substance: PROCARBAZINE HYDROCHLORIDE
  2. GLEOSTINE [Suspect]
     Active Substance: LOMUSTINE
     Indication: BRAIN NEOPLASM MALIGNANT
     Dosage: ?          OTHER FREQUENCY:ON DAY 1;?
     Route: 048
     Dates: start: 20190126

REACTIONS (1)
  - Bone loss [None]
